FAERS Safety Report 7785018-3 (Version None)
Quarter: 2011Q3

REPORT INFORMATION
  Report Type: 
  Country: None (occurrence: None)
  Receive Date: 20110929
  Receipt Date: 20110926
  Transmission Date: 20111222
  Serious: Yes (Death, Hospitalization)
  Sender: FDA-Public Use
  Company Number: FR-BRISTOL-MYERS SQUIBB COMPANY-16037095

PATIENT
  Age: 72 Year
  Sex: Female

DRUGS (6)
  1. CERIS [Concomitant]
  2. ABILIFY [Suspect]
     Dates: end: 20110301
  3. OXAZEPAM [Concomitant]
  4. MIRTAZAPINE [Concomitant]
  5. TRIHEXYPHENIDYL HYDROCHLORIDE [Concomitant]
     Dosage: PARKINANE LP
  6. HALDOL [Suspect]
     Dosage: 20 MG/ML IS THE STRENGTH
     Route: 048
     Dates: start: 20100925, end: 20101001

REACTIONS (4)
  - RESPIRATORY DISTRESS [None]
  - DYSPHAGIA [None]
  - EXTRAPYRAMIDAL DISORDER [None]
  - LUNG DISORDER [None]
